FAERS Safety Report 7880233-2 (Version None)
Quarter: 2011Q4

REPORT INFORMATION
  Report Type: 
  Country: None (occurrence: None)
  Receive Date: 20111101
  Receipt Date: 20111027
  Transmission Date: 20120403
  Serious: No
  Sender: FDA-Public Use
  Company Number: US-PFIZER INC-2011263497

PATIENT
  Age: 57 Year
  Sex: Female
  Weight: 45.351 kg

DRUGS (12)
  1. PROZAC [Suspect]
     Dosage: 40 MG, DAILY
     Dates: start: 20110101
  2. COMPAZINE [Concomitant]
     Indication: ABDOMINAL DISCOMFORT
     Dosage: UNK
  3. EFFEXOR [Suspect]
     Dosage: 300 MG, DAILY
     Dates: start: 19910101
  4. KLONOPIN [Suspect]
     Dosage: 1.5 MG, DAILY
  5. VILAZODONE HYDROCHLORIDE [Suspect]
     Indication: MAJOR DEPRESSION
     Dosage: 10 MG DAILY
     Route: 048
     Dates: start: 20110801, end: 20110101
  6. VILAZODONE HYDROCHLORIDE [Suspect]
     Indication: ANXIETY
     Dosage: 40 MG, DAILY
     Route: 048
     Dates: start: 20110101, end: 20110101
  7. LACTULOSE [Concomitant]
     Indication: COLOSTOMY
     Dosage: UNK
  8. AMBIEN [Suspect]
     Indication: INSOMNIA
     Dosage: UNK
  9. PSYLLIUM [Concomitant]
     Dosage: UNK
  10. PROZAC [Suspect]
     Indication: MAJOR DEPRESSION
     Dosage: 80 MG, DAILY
     Dates: start: 19910101
  11. PROZAC [Suspect]
     Indication: ANXIETY
     Dosage: 60 MG, DAILY
     Dates: start: 20110101, end: 20110101
  12. SYNTHROID [Concomitant]
     Dosage: 105 UG, 1X/DAY

REACTIONS (7)
  - LIGAMENT SPRAIN [None]
  - MYDRIASIS [None]
  - WEIGHT INCREASED [None]
  - ARTHRALGIA [None]
  - DRY MOUTH [None]
  - OCULAR HYPERAEMIA [None]
  - UNEVALUABLE EVENT [None]
